FAERS Safety Report 24104223 (Version 2)
Quarter: 2024Q3

REPORT INFORMATION
  Report Type: Spontaneous
  Country: CN (occurrence: CN)
  Receive Date: 20240717
  Receipt Date: 20240806
  Transmission Date: 20241017
  Serious: Yes (Hospitalization, Other)
  Sender: BEIGENE
  Company Number: CN-BEIGENE-BGN-2024-004513

PATIENT

DRUGS (5)
  1. TISLELIZUMAB [Suspect]
     Active Substance: TISLELIZUMAB
     Indication: Lung adenocarcinoma
     Dosage: 0.2 GRAM
     Route: 041
     Dates: start: 20240227
  2. CARBOPLATIN [Suspect]
     Active Substance: CARBOPLATIN
     Indication: Lung adenocarcinoma
     Dosage: 400 MILLIGRAM
     Route: 041
     Dates: start: 20240228
  3. PEMETREXED DISODIUM [Suspect]
     Active Substance: PEMETREXED DISODIUM
     Indication: Lung adenocarcinoma
     Dosage: 0.7 GRAM
     Route: 041
     Dates: start: 20240228
  4. BEVACIZUMAB [Suspect]
     Active Substance: BEVACIZUMAB
     Indication: Lung adenocarcinoma
     Dosage: 600 MILLIGRAM
     Route: 041
     Dates: start: 20240229
  5. FIRMONERTINIB MESYLATE [Suspect]
     Active Substance: FIRMONERTINIB MESYLATE
     Indication: Lung adenocarcinoma
     Dosage: 80 MILLIGRAM, QD
     Route: 048

REACTIONS (8)
  - Decreased appetite [Unknown]
  - Fatigue [Unknown]
  - Cough [Unknown]
  - Myelosuppression [Unknown]
  - Dermatitis exfoliative [Unknown]
  - Gastrointestinal disorder [Unknown]
  - Loss of personal independence in daily activities [Unknown]
  - Cognitive disorder [Unknown]
